FAERS Safety Report 17388575 (Version 1)
Quarter: 2020Q1

REPORT INFORMATION
  Report Type: Spontaneous
  Country: JP (occurrence: JP)
  Receive Date: 20200206
  Receipt Date: 20200206
  Transmission Date: 20200409
  Serious: Yes (Hospitalization, Other)
  Sender: FDA-Public Use
  Company Number: JP-009507513-2001JPN000976J

PATIENT
  Age: 76 Year
  Sex: Male
  Weight: 47 kg

DRUGS (7)
  1. LIMAS [Concomitant]
     Active Substance: LITHIUM CARBONATE
     Indication: BIPOLAR I DISORDER
     Dosage: 100 MILLIGRAM, BID
     Route: 048
     Dates: start: 20180126
  2. KEYTRUDA [Suspect]
     Active Substance: PEMBROLIZUMAB
     Indication: NON-SMALL CELL LUNG CANCER
     Dosage: 200 MILLIGRAM, Q3W
     Route: 041
     Dates: start: 20180926, end: 20191122
  3. QUETIAPINE. [Concomitant]
     Active Substance: QUETIAPINE
     Indication: BIPOLAR I DISORDER
     Dosage: 25 MILLIGRAM, QD
     Route: 048
     Dates: start: 20180126
  4. BELSOMRA [Concomitant]
     Active Substance: SUVOREXANT
     Indication: BIPOLAR I DISORDER
     Dosage: 15 MILLIGRAM, QD
     Route: 048
     Dates: start: 20180313
  5. URIEF [Concomitant]
     Active Substance: SILODOSIN
     Indication: BENIGN PROSTATIC HYPERPLASIA
     Dosage: 4 MILLIGRAM, BID
     Route: 048
     Dates: start: 20180126
  6. SEPAZON [Concomitant]
     Active Substance: CLOXAZOLAM
     Indication: BIPOLAR I DISORDER
     Dosage: 1 MILLIGRAM, BID
     Route: 048
     Dates: start: 20180126
  7. AVOLVE [Concomitant]
     Active Substance: DUTASTERIDE
     Indication: BENIGN PROSTATIC HYPERPLASIA
     Dosage: 0.5 MILLIGRAM, QD
     Route: 048
     Dates: start: 20180126

REACTIONS (9)
  - Meningitis [Unknown]
  - Altered state of consciousness [Recovering/Resolving]
  - Guillain-Barre syndrome [Recovering/Resolving]
  - Pyrexia [Recovered/Resolved]
  - Pneumonia [Unknown]
  - Muscular weakness [Recovering/Resolving]
  - Sensory disturbance [Unknown]
  - Hypophagia [Recovered/Resolved]
  - Adrenocorticotropic hormone deficiency [Recovered/Resolved]

NARRATIVE: CASE EVENT DATE: 201912
